FAERS Safety Report 11887504 (Version 1)
Quarter: 2016Q1

REPORT INFORMATION
  Report Type: Spontaneous
  Country: FR (occurrence: FR)
  Receive Date: 20160105
  Receipt Date: 20160105
  Transmission Date: 20160526
  Serious: Yes (Hospitalization, Other)
  Sender: FDA-Public Use
  Company Number: FR-BRISTOL-MYERS SQUIBB COMPANY-10022143

PATIENT
  Sex: Female
  Weight: 3.03 kg

DRUGS (2)
  1. VIDEX [Suspect]
     Active Substance: DIDANOSINE
     Indication: PRODUCT USED FOR UNKNOWN INDICATION
     Dosage: UNK
     Route: 064
  2. RETROVIR [Suspect]
     Active Substance: ZIDOVUDINE
     Indication: PRODUCT USED FOR UNKNOWN INDICATION
     Route: 064

REACTIONS (7)
  - Thrombocytopenia [Unknown]
  - Foetal exposure during pregnancy [Recovered/Resolved]
  - Weight gain poor [Unknown]
  - HIV test negative [Unknown]
  - Blood lactic acid increased [Recovered/Resolved with Sequelae]
  - Anaemia [Recovered/Resolved with Sequelae]
  - Hyperkinesia [Recovered/Resolved with Sequelae]

NARRATIVE: CASE EVENT DATE: 1998
